FAERS Safety Report 7987943-7 (Version None)
Quarter: 2011Q4

REPORT INFORMATION
  Report Type: 
  Country: None (occurrence: None)
  Receive Date: 20111216
  Receipt Date: 20101206
  Transmission Date: 20120403
  Serious: No
  Sender: FDA-Public Use
  Company Number: US-BRISTOL-MYERS SQUIBB COMPANY-15399272

PATIENT
  Age: 54 Year
  Sex: Female

DRUGS (3)
  1. SERTRALINE HYDROCHLORIDE [Concomitant]
     Dosage: 2 PILLS DAILY
  2. TRAZODONE HCL [Concomitant]
     Dosage: 1 TO 2 AT BED TIME
  3. ABILIFY [Suspect]
     Indication: MAJOR DEPRESSION
     Dosage: STARTED AS 1MG AND INCREASED TO 2 MG,1/2 TAB FOR 1 WEEK,BY 3RD WEEK 1-2MG DAILY.
     Route: 048

REACTIONS (1)
  - OROPHARYNGEAL CANDIDIASIS [None]
